FAERS Safety Report 6769333-8 (Version None)
Quarter: 2010Q2

REPORT INFORMATION
  Report Type: 
  Country: None (occurrence: None)
  Receive Date: 20100615
  Receipt Date: 20100604
  Transmission Date: 20101027
  Serious: Yes (Life-Threatening, Other)
  Sender: FDA-Public Use
  Company Number: GR-MPIJNJ-2010-02893

PATIENT

DRUGS (2)
  1. VELCADE [Suspect]
     Indication: MULTIPLE MYELOMA
     Dosage: 1.3 MG/M2, CYCLIC
     Route: 042
  2. MEDROL [Suspect]
     Indication: MULTIPLE MYELOMA
     Dosage: UNK

REACTIONS (2)
  - BRAIN OEDEMA [None]
  - ENCEPHALITIS [None]
